FAERS Safety Report 26163628 (Version 1)
Quarter: 2025Q4

REPORT INFORMATION
  Report Type: Report from Study
  Country: US (occurrence: US)
  Receive Date: 20251216
  Receipt Date: 20251216
  Transmission Date: 20260117
  Serious: Yes (Death)
  Sender: OTSUKA
  Company Number: US-MMM-Otsuka-69K1S857

PATIENT
  Sex: Female

DRUGS (1)
  1. BREXPIPRAZOLE [Suspect]
     Active Substance: BREXPIPRAZOLE
     Indication: Product used for unknown indication
     Dosage: 0.25 MG, QD (ONCE PER DAY)
     Route: 065

REACTIONS (2)
  - Death [Fatal]
  - Off label use [Unknown]
